FAERS Safety Report 14761580 (Version 1)
Quarter: 2018Q2

REPORT INFORMATION
  Report Type: Spontaneous
  Country: US (occurrence: US)
  Receive Date: 20180416
  Receipt Date: 20180416
  Transmission Date: 20180711
  Serious: No
  Sender: FDA-Public Use
  Company Number: US-JNJFOC-20180400055

PATIENT
  Age: 58 Year
  Sex: Female
  Weight: 80 kg

DRUGS (3)
  1. STELARA [Suspect]
     Active Substance: USTEKINUMAB
     Indication: CROHN^S DISEASE
     Route: 058
     Dates: start: 201704
  2. ESTRIOL [Concomitant]
     Active Substance: ESTRIOL
     Indication: MENOPAUSE
     Route: 048
  3. VITAMINE D [Concomitant]
     Route: 048

REACTIONS (2)
  - Product storage error [Unknown]
  - Drug dose omission [Unknown]

NARRATIVE: CASE EVENT DATE: 201803
